FAERS Safety Report 6966943-X (Version None)
Quarter: 2010Q3

REPORT INFORMATION
  Report Type: 
  Country: None (occurrence: None)
  Receive Date: 20100906
  Receipt Date: 20100729
  Transmission Date: 20110219
  Serious: No
  Sender: FDA-Public Use
  Company Number: US-ALLERGAN-1009897US

PATIENT
  Age: 58 Year
  Sex: Female

DRUGS (2)
  1. ZYMAXID [Suspect]
     Indication: CONJUNCTIVITIS BACTERIAL
     Dosage: 1 GTT, TID
     Route: 047
     Dates: start: 20100727
  2. LOTEMAX [Concomitant]
     Indication: CONJUNCTIVITIS BACTERIAL
     Dosage: 1 GTT, TID
     Route: 047
     Dates: start: 20100727

REACTIONS (1)
  - EYE IRRITATION [None]
